FAERS Safety Report 7175835-5 (Version None)
Quarter: 2010Q4

REPORT INFORMATION
  Report Type: 
  Country: None (occurrence: None)
  Receive Date: 20101220
  Receipt Date: 20100409
  Transmission Date: 20110411
  Serious: Yes (Hospitalization)
  Sender: FDA-Public Use
  Company Number: US-AMGEN-QUU403082

PATIENT

DRUGS (10)
  1. ENBREL [Suspect]
     Indication: RHEUMATOID ARTHRITIS
     Dosage: 50 MG, UNK
     Route: 058
     Dates: start: 20090801
  2. FOLATE SODIUM [Concomitant]
  3. MONTELUKAST [Concomitant]
  4. FLUTICASONE/SALMETEROL [Concomitant]
  5. FEXOFENADINE HCL [Concomitant]
  6. HYDROXYCHLOROQUINE SULFATE [Concomitant]
  7. IRON [Concomitant]
  8. CALCIUM [Concomitant]
  9. METHOTREXATE [Concomitant]
  10. ANASTROZOLE [Concomitant]

REACTIONS (2)
  - CELLULITIS [None]
  - STREPTOCOCCAL SEPSIS [None]
